FAERS Safety Report 15991932 (Version 1)
Quarter: 2019Q1

REPORT INFORMATION
  Report Type: Spontaneous
  Country: US (occurrence: US)
  Receive Date: 20190221
  Receipt Date: 20190221
  Transmission Date: 20190418
  Serious: No
  Sender: FDA-Public Use
  Company Number: US-VIFOR (INTERNATIONAL) INC.-VIT-2019-01452

PATIENT
  Sex: Male

DRUGS (25)
  1. FUROSEMIDE. [Concomitant]
     Active Substance: FUROSEMIDE
  2. ERGOCALCIFEROL. [Concomitant]
     Active Substance: ERGOCALCIFEROL
  3. LIQUAFIBER [Concomitant]
  4. CALCIUM+D+K [Concomitant]
  5. DOXYCYCLINE HYCLATE. [Concomitant]
     Active Substance: DOXYCYCLINE HYCLATE
  6. GABAPENTIN. [Concomitant]
     Active Substance: GABAPENTIN
  7. VITAMIN E COMPLETE [Concomitant]
  8. ARANESP (ALBUMIN FREE) [Concomitant]
  9. CALCITRATE [Concomitant]
     Active Substance: CALCIUM CITRATE
  10. CARDIZEM [Concomitant]
     Active Substance: DILTIAZEM HYDROCHLORIDE
  11. EPOGEN [Concomitant]
     Active Substance: ERYTHROPOIETIN
  12. PANTOPRAZOLE SODIUM. [Concomitant]
     Active Substance: PANTOPRAZOLE SODIUM
  13. VITAMIN B12 [Concomitant]
     Active Substance: CYANOCOBALAMIN
  14. DILTIAZEM CD [Concomitant]
     Active Substance: DILTIAZEM
  15. LEVEMIR [Concomitant]
     Active Substance: INSULIN DETEMIR
  16. LIQUACEL [Concomitant]
  17. CYANOCOBALAMIN. [Concomitant]
     Active Substance: CYANOCOBALAMIN
  18. HUMALOG KWIKPEN [Concomitant]
     Active Substance: INSULIN LISPRO
  19. HYDRALAZINE HCL [Concomitant]
     Active Substance: HYDRALAZINE HYDROCHLORIDE
  20. LASIX [Concomitant]
     Active Substance: FUROSEMIDE
  21. TAMSULOSIN HCL [Concomitant]
     Active Substance: TAMSULOSIN HYDROCHLORIDE
  22. VELTASSA [Suspect]
     Active Substance: PATIROMER
     Indication: HYPERKALAEMIA
     Route: 048
     Dates: start: 20160325
  23. FLOMAX [Concomitant]
     Active Substance: TAMSULOSIN HYDROCHLORIDE
  24. XARELTO [Concomitant]
     Active Substance: RIVAROXABAN
  25. METOPROLOL TARTRATE. [Concomitant]
     Active Substance: METOPROLOL TARTRATE

REACTIONS (1)
  - Product physical issue [Unknown]
